FAERS Safety Report 17871314 (Version 4)
Quarter: 2023Q2

REPORT INFORMATION
  Report Type: Report from Study
  Country: GB (occurrence: GB)
  Receive Date: 20200608
  Receipt Date: 20230623
  Transmission Date: 20230721
  Serious: Yes (Other)
  Sender: FDA-Public Use
  Company Number: NVSC2020GB158605

PATIENT
  Age: 83 Year
  Sex: Male

DRUGS (3)
  1. SANDOSTATIN LAR DEPOT [Suspect]
     Active Substance: OCTREOTIDE ACETATE
     Indication: Gastroenteropancreatic neuroendocrine tumour disease
     Dosage: 20 MG, QMO (4 WEEKLY)
     Route: 030
     Dates: start: 202004
  2. SANDOSTATIN LAR DEPOT [Suspect]
     Active Substance: OCTREOTIDE ACETATE
  3. SANDOSTATIN LAR DEPOT [Suspect]
     Active Substance: OCTREOTIDE ACETATE

REACTIONS (14)
  - Macular degeneration [Unknown]
  - Cellulitis [Unknown]
  - Pollakiuria [Unknown]
  - Depressed mood [Not Recovered/Not Resolved]
  - Seasonal allergy [Unknown]
  - Rhinorrhoea [Unknown]
  - Eye swelling [Unknown]
  - Sneezing [Unknown]
  - Urinary tract infection [Recovered/Resolved]
  - Depression [Unknown]
  - Abdominal distension [Unknown]
  - Dyspepsia [Unknown]
  - Dyspnoea [Unknown]
  - Flatulence [Unknown]

NARRATIVE: CASE EVENT DATE: 20210107
